FAERS Safety Report 6963001-5 (Version None)
Quarter: 2010Q3

REPORT INFORMATION
  Report Type: 
  Country: None (occurrence: None)
  Receive Date: 20100830
  Receipt Date: 20100817
  Transmission Date: 20110219
  Serious: Yes (Death)
  Sender: FDA-Public Use
  Company Number: A-CH2010-39084

PATIENT
  Age: 70 Year
  Sex: Male
  Weight: 64.6 kg

DRUGS (5)
  1. TRACLEER [Suspect]
     Indication: PULMONARY ARTERIAL HYPERTENSION
     Dosage: 125 MG, BID, ORAL
     Route: 048
     Dates: start: 20060101, end: 20100619
  2. VENTAVIS [Suspect]
     Indication: PULMONARY ARTERIAL HYPERTENSION
     Dates: start: 20080401
  3. SILDENAFIL CITRATE [Concomitant]
  4. NEXAVAR [Concomitant]
  5. MARCUMAR [Concomitant]

REACTIONS (1)
  - DEATH [None]
